FAERS Safety Report 17229408 (Version 3)
Quarter: 2024Q1

REPORT INFORMATION
  Report Type: Spontaneous
  Country: US (occurrence: US)
  Receive Date: 20200103
  Receipt Date: 20240131
  Transmission Date: 20240410
  Serious: No
  Sender: FDA-Public Use
  Company Number: US-JNJFOC-20200102741

PATIENT
  Age: 16 Year
  Sex: Male

DRUGS (5)
  1. RISPERDAL [Suspect]
     Active Substance: RISPERIDONE
     Indication: Autism spectrum disorder
     Dosage: VARYING DOSES OF 1 MG TWICE DAILY AND 2 MG AT BEDTIME
     Route: 048
     Dates: start: 2008, end: 2014
  2. RISPERDAL [Suspect]
     Active Substance: RISPERIDONE
     Indication: Agitation
  3. RISPERDAL [Suspect]
     Active Substance: RISPERIDONE
     Indication: Intentional self-injury
  4. RISPERDAL M-TAB [Suspect]
     Active Substance: RISPERIDONE
     Indication: Autism spectrum disorder
     Route: 048
  5. NALTREXONE [Suspect]
     Active Substance: NALTREXONE
     Indication: Autism spectrum disorder
     Route: 048

REACTIONS (5)
  - Emotional disorder [Unknown]
  - Hepatic function abnormal [Unknown]
  - Gynaecomastia [Unknown]
  - Blood prolactin increased [Unknown]
  - Somnolence [Unknown]

NARRATIVE: CASE EVENT DATE: 20140101
